FAERS Safety Report 9183336 (Version 1)
Quarter: 2012Q4

REPORT INFORMATION
  Report Type: 
  Country: JP (occurrence: JP)
  Receive Date: 20121030
  Receipt Date: 20121030
  Transmission Date: 20130627
  Serious: Yes (Other)
  Sender: FDA-Public Use
  Company Number: JP-009507513-2012SP032063

PATIENT
  Age: 70 Year
  Sex: Male

DRUGS (2)
  1. PEG-INTRON [Suspect]
     Indication: HEPATITIS C
     Dosage: UNK UNK, QW
     Route: 058
  2. REBETOL [Suspect]
     Indication: HEPATITIS C
     Dosage: UNK UNK, QD
     Route: 048

REACTIONS (1)
  - Toxic encephalopathy [Unknown]
